FAERS Safety Report 8033635-8 (Version None)
Quarter: 2012Q1

REPORT INFORMATION
  Report Type: 
  Country: None (occurrence: None)
  Receive Date: 20120110
  Receipt Date: 20120106
  Transmission Date: 20120608
  Serious: No
  Sender: FDA-Public Use
  Company Number: US-PFIZER INC-2012004985

PATIENT
  Sex: Male

DRUGS (1)
  1. PROTONIX [Suspect]
     Dosage: UNK
     Route: 048
     Dates: start: 20020101

REACTIONS (4)
  - VISION BLURRED [None]
  - HEADACHE [None]
  - NIGHTMARE [None]
  - ABNORMAL DREAMS [None]
